FAERS Safety Report 5238514-7 (Version None)
Quarter: 2007Q1

REPORT INFORMATION
  Report Type: 
  Country: None (occurrence: None)
  Receive Date: 20070215
  Receipt Date: 20070213
  Transmission Date: 20070707
  Serious: Yes (Hospitalization, Other)
  Sender: FDA-Public Use
  Company Number: US-GLAXOSMITHKLINE-A0635983A

PATIENT
  Age: 40 Year
  Sex: Female
  Weight: 141.4 kg

DRUGS (13)
  1. AVANDIA [Suspect]
     Dosage: 4MG TWICE PER DAY
     Route: 048
     Dates: start: 20050101, end: 20061226
  2. INSULIN [Suspect]
     Route: 065
  3. VYTORIN [Concomitant]
     Dosage: 1TAB PER DAY
  4. TRICOR [Concomitant]
     Dosage: 145MG PER DAY
  5. LASIX [Concomitant]
  6. DIOVAN HCT [Concomitant]
     Dosage: 1TAB PER DAY
  7. PREVACID [Concomitant]
     Dosage: 30MG PER DAY
  8. LAMISIL [Concomitant]
     Dosage: 250MG PER DAY
     Route: 048
  9. POTASSIUM ACETATE [Concomitant]
  10. METFORMIN HCL [Concomitant]
     Dosage: 1000MG TWICE PER DAY
     Route: 048
  11. TARKA [Concomitant]
  12. BYETTA [Concomitant]
     Dosage: 10MCG TWICE PER DAY
     Route: 058
  13. LANTUS [Concomitant]
     Route: 058

REACTIONS (14)
  - CELLULITIS [None]
  - DIABETES MELLITUS INADEQUATE CONTROL [None]
  - ERYTHEMA [None]
  - FEELING HOT [None]
  - FLUID RETENTION [None]
  - OEDEMA PERIPHERAL [None]
  - ONYCHOMYCOSIS [None]
  - PRURITUS [None]
  - SKIN EXFOLIATION [None]
  - SKIN FISSURES [None]
  - SKIN ULCER [None]
  - STASIS DERMATITIS [None]
  - TINEA PEDIS [None]
  - WEIGHT INCREASED [None]
